FAERS Safety Report 26122575 (Version 2)
Quarter: 2025Q4

REPORT INFORMATION
  Report Type: Spontaneous
  Country: EU (occurrence: EU)
  Receive Date: 20251204
  Receipt Date: 20251230
  Transmission Date: 20260119
  Serious: Yes (Hospitalization, Other)
  Sender: MYLAN
  Company Number: EU-BIOVITRUM-2025-FR-015972

PATIENT
  Age: 5 Year
  Sex: Female
  Weight: 29 kg

DRUGS (7)
  1. DEXAMETHASONE [Suspect]
     Active Substance: DEXAMETHASONE
     Indication: Acute lymphocytic leukaemia
     Dosage: 5 MILLIGRAM, BID (EVERY 12 HOURS)
     Dates: start: 20251112
  2. METHYLPREDNISOLONE [Suspect]
     Active Substance: METHYLPREDNISOLONE
     Indication: Acute lymphocytic leukaemia
     Dosage: 30 MILLIGRAM
  3. METHYLPREDNISOLONE [Suspect]
     Active Substance: METHYLPREDNISOLONE
     Dosage: 30 MILLIGRAM
  4. GAMIFANT [Suspect]
     Active Substance: EMAPALUMAB-LZSG
     Indication: Haemophagocytic lymphohistiocytosis
     Dosage: 5 MILLIGRAM PER MILLILITRE (INJECTABLE SOLUTION FOR INFUSION)
  5. KINERET [Suspect]
     Active Substance: ANAKINRA
     Indication: Acute lymphocytic leukaemia
     Dosage: 120 MILLIGRAM, Q6H (EVERY 6 HOURS)
     Dates: start: 20251112, end: 20251121
  6. TOCILIZUMAB [Suspect]
     Active Substance: TOCILIZUMAB
     Indication: Acute lymphocytic leukaemia
     Dosage: 340 MILLIGRAM (FIRST DOSE)
  7. TOCILIZUMAB [Suspect]
     Active Substance: TOCILIZUMAB
     Dosage: 340 MILLIGRAM (SECOND DOSE (12 HOURS LATER)

REACTIONS (7)
  - Haemophagocytic lymphohistiocytosis [Recovered/Resolved]
  - Disseminated intravascular coagulation [Unknown]
  - Haemodynamic instability [Unknown]
  - Hypernatraemia [Unknown]
  - Oedema [Unknown]
  - Abdominal pain [Unknown]
  - Off label use [Recovered/Resolved]

NARRATIVE: CASE EVENT DATE: 20251112
